FAERS Safety Report 24204189 (Version 1)
Quarter: 2024Q3

REPORT INFORMATION
  Report Type: Spontaneous
  Country: US (occurrence: US)
  Receive Date: 20240813
  Receipt Date: 20240813
  Transmission Date: 20241017
  Serious: No
  Sender: RANBAXY
  Company Number: US-SUN PHARMACEUTICAL INDUSTRIES LTD-2024R1-449952

PATIENT
  Age: 67 Year
  Sex: Female

DRUGS (3)
  1. TRAMADOL [Suspect]
     Active Substance: TRAMADOL\TRAMADOL HYDROCHLORIDE
     Indication: Pain
     Dosage: UNK
     Route: 065
  2. GABAPENTIN [Suspect]
     Active Substance: GABAPENTIN
     Indication: Pain
     Dosage: UNK
     Route: 065
  3. OGSIVEO [Suspect]
     Active Substance: NIROGACESTAT\NIROGACESTAT HYDROBROMIDE
     Indication: Product used for unknown indication
     Dosage: 150 MILLIGRAM
     Route: 048

REACTIONS (7)
  - Nasal dryness [Unknown]
  - Dry mouth [Unknown]
  - Paranasal sinus hyposecretion [Unknown]
  - Thirst [Unknown]
  - Dyspepsia [Unknown]
  - Diarrhoea [Unknown]
  - Nausea [Unknown]
